FAERS Safety Report 5328257-3 (Version None)
Quarter: 2007Q2

REPORT INFORMATION
  Report Type: 
  Country: None (occurrence: None)
  Receive Date: 20070516
  Receipt Date: 20070516
  Transmission Date: 20071010
  Serious: Yes (Hospitalization)
  Sender: FDA-Public Use
  Company Number: None

PATIENT
  Sex: Male
  Weight: 89.3 kg

DRUGS (4)
  1. WARFARIN SODIUM [Suspect]
     Indication: ATRIAL FIBRILLATION
     Dosage: 5MG + 2.5MG (PO) DAILY EXCEPT TH
     Route: 048
     Dates: start: 20060602, end: 20060911
  2. AMIODARONE HCL [Concomitant]
  3. AZITHROMYCIN [Concomitant]
  4. SIMVASTATIN [Concomitant]

REACTIONS (5)
  - EPISTAXIS [None]
  - HAEMATURIA [None]
  - HAEMORRHAGE [None]
  - INTERNATIONAL NORMALISED RATIO INCREASED [None]
  - LIMB INJURY [None]
